FAERS Safety Report 9537581 (Version 2)
Quarter: 2014Q1

REPORT INFORMATION
  Report Type: Report from Study
  Country: CO (occurrence: CO)
  Receive Date: 20130919
  Receipt Date: 20140123
  Transmission Date: 20141002
  Serious: Yes (Other)
  Sender: FDA-Public Use
  Company Number: CO-ABBVIE-13P-036-1148506-00

PATIENT
  Age: 33 Year
  Sex: Male
  Weight: 71 kg

DRUGS (2)
  1. HUMIRA [Suspect]
     Indication: ANKYLOSING SPONDYLITIS
     Route: 058
     Dates: start: 20130222, end: 20130813
  2. HUMIRA [Suspect]
     Route: 058
     Dates: start: 20130920

REACTIONS (3)
  - Abdominal mass [Recovered/Resolved]
  - Skin burning sensation [Recovered/Resolved]
  - Umbilical hernia [Recovered/Resolved]
